FAERS Safety Report 16163234 (Version 1)
Quarter: 2019Q2

REPORT INFORMATION
  Report Type: Spontaneous
  Country: US (occurrence: US)
  Receive Date: 20190405
  Receipt Date: 20190405
  Transmission Date: 20190711
  Serious: No
  Sender: FDA-Public Use
  Company Number: US-TEVA-2019-US-1024585

PATIENT
  Sex: Female

DRUGS (1)
  1. CLONAZEPAM. [Suspect]
     Active Substance: CLONAZEPAM
     Dates: start: 20190221

REACTIONS (15)
  - Back pain [Unknown]
  - Dry mouth [Unknown]
  - Myalgia [Unknown]
  - Alopecia [Unknown]
  - Hyperacusis [Unknown]
  - Withdrawal syndrome [Unknown]
  - Swollen tongue [Unknown]
  - Nightmare [Unknown]
  - Insomnia [Unknown]
  - Parosmia [Unknown]
  - Arthralgia [Unknown]
  - Chest pain [Unknown]
  - Lip swelling [Unknown]
  - Taste disorder [Unknown]
  - Photophobia [Unknown]
